FAERS Safety Report 8513300-0 (Version None)
Quarter: 2012Q3

REPORT INFORMATION
  Report Type: 
  Country: None (occurrence: None)
  Receive Date: 20120716
  Receipt Date: 20120711
  Transmission Date: 20120928
  Serious: Yes (Hospitalization, Other)
  Sender: FDA-Public Use
  Company Number: BR-BAYER-2012-069287

PATIENT
  Sex: Female

DRUGS (3)
  1. BETASERON [Suspect]
     Indication: MULTIPLE SCLEROSIS
     Dosage: 1 ML, QOD
     Route: 058
  2. CLONAZEPAM [Concomitant]
     Indication: RELAXATION THERAPY
     Dosage: 1 DF, HS
     Route: 048
     Dates: start: 19970101
  3. PAMELOR [Concomitant]
     Indication: DEPRESSION
     Dosage: 1 DF, QD
     Route: 048

REACTIONS (9)
  - BACK PAIN [None]
  - HAEMOGLOBIN DECREASED [None]
  - SPINAL CORD DISORDER [None]
  - ABDOMINAL DISTENSION [None]
  - MULTIPLE SCLEROSIS RELAPSE [None]
  - SPINAL DISORDER [None]
  - MALAISE [None]
  - FALL [None]
  - NEUROGENIC BLADDER [None]
